FAERS Safety Report 18911887 (Version 1)
Quarter: 2021Q1

REPORT INFORMATION
  Report Type: Spontaneous
  Country: CN (occurrence: CN)
  Receive Date: 20210218
  Receipt Date: 20210218
  Transmission Date: 20210420
  Serious: Yes (Hospitalization)
  Sender: FDA-Public Use
  Company Number: CN-GLAXOSMITHKLINE-CN2021APC042226

PATIENT

DRUGS (2)
  1. SERETIDE [Suspect]
     Active Substance: FLUTICASONE PROPIONATE\SALMETEROL XINAFOATE
     Indication: ASTHMA
     Dosage: UNK,1 INH/TID SYMPTOMS SEVERE AND 1 INH/BID SYMPTOMS MILD,50/500 UG AND 50/250 UG
     Route: 055
     Dates: start: 2016, end: 2019
  2. SERETIDE [Suspect]
     Active Substance: FLUTICASONE PROPIONATE\SALMETEROL XINAFOATE
     Dosage: UNK,1INH/TID WHENSYMPTOMS SEVERE AND 1 INH/BID WHEN SYMPTOMS MILD,50/500 UG AND 50/250 UG
     Route: 055
     Dates: start: 2019

REACTIONS (3)
  - Product use issue [Unknown]
  - Asthma [Unknown]
  - Overdose [Unknown]

NARRATIVE: CASE EVENT DATE: 202101
